FAERS Safety Report 5045015-8 (Version None)
Quarter: 2006Q3

REPORT INFORMATION
  Report Type: 
  Country: None (occurrence: None)
  Receive Date: 20060705
  Receipt Date: 20060627
  Transmission Date: 20061208
  Serious: Yes (Hospitalization, Disabling)
  Sender: FDA-Public Use
  Company Number: CIP06001466

PATIENT
  Age: 44 Year
  Sex: Female
  Weight: 96.1 kg

DRUGS (5)
  1. ACTONEL [Suspect]
     Indication: OSTEOPOROSIS
     Dosage: 35 MG ONCE WEEKLY, ORAL
     Route: 048
  2. THEO-DUR [Concomitant]
  3. VERELAN (VERAPAMIL HYDROCHLORIDE) [Concomitant]
  4. DIGOXIN [Concomitant]
  5. PROVENTIL (SALBUTAMOL SULFATE) [Concomitant]

REACTIONS (3)
  - JAW DISORDER [None]
  - OSTEOMYELITIS [None]
  - OSTEONECROSIS [None]
